FAERS Safety Report 18526380 (Version 1)
Quarter: 2020Q4

REPORT INFORMATION
  Report Type: Spontaneous
  Country: US (occurrence: US)
  Receive Date: 20201120
  Receipt Date: 20201120
  Transmission Date: 20210114
  Serious: Yes (Hospitalization, Other)
  Sender: FDA-Public Use
  Company Number: US-VELOXIS PHARMACEUTICALS-2020VELUS-000961

PATIENT
  Sex: Male

DRUGS (2)
  1. ENVARSUS XR [Suspect]
     Active Substance: TACROLIMUS
     Indication: PRODUCT USED FOR UNKNOWN INDICATION
     Dosage: 5 MG (1 MG)
     Dates: start: 201910
  2. ENVARSUS XR [Suspect]
     Active Substance: TACROLIMUS
     Dosage: 5 MG (4 MG)
     Dates: start: 201910

REACTIONS (2)
  - Transplant rejection [Unknown]
  - Weight increased [Unknown]
